FAERS Safety Report 5677748-4 (Version None)
Quarter: 2008Q1

REPORT INFORMATION
  Report Type: 
  Country: None (occurrence: None)
  Receive Date: 20080324
  Receipt Date: 20080208
  Transmission Date: 20080703
  Serious: No
  Sender: FDA-Public Use
  Company Number: US-ABBOTT-08P-163-0437512-00

PATIENT
  Age: 40 Year
  Sex: Male
  Weight: 72.64 kg

DRUGS (1)
  1. BIAXIN XL [Suspect]
     Indication: INFECTION
     Route: 048
     Dates: start: 20080206, end: 20080208

REACTIONS (3)
  - DISORIENTATION [None]
  - PSYCHOTIC DISORDER [None]
  - THINKING ABNORMAL [None]
